FAERS Safety Report 8026293-X (Version None)
Quarter: 2012Q1

REPORT INFORMATION
  Report Type: 
  Country: None (occurrence: None)
  Receive Date: 20120105
  Receipt Date: 20111208
  Transmission Date: 20120608
  Serious: No
  Sender: FDA-Public Use
  Company Number: US-ABBOTT-11P-163-0881421-00

PATIENT
  Sex: Female
  Weight: 59.02 kg

DRUGS (5)
  1. UNKNOWN ALLERGY MEDICATIONS [Concomitant]
     Indication: PRODUCT USED FOR UNKNOWN INDICATION
  2. SYNTHROID [Suspect]
     Indication: HYPOTHYROIDISM
  3. SYNTHROID [Suspect]
     Indication: HYPOTHYROIDISM
     Dates: start: 20000101
  4. ZOLOFT [Concomitant]
     Indication: PRODUCT USED FOR UNKNOWN INDICATION
     Dates: start: 20111030
  5. SYNTHROID [Suspect]

REACTIONS (8)
  - EYE SWELLING [None]
  - COUGH [None]
  - THYROID FUNCTION TEST ABNORMAL [None]
  - CONSTIPATION [None]
  - WEIGHT INCREASED [None]
  - URTICARIA [None]
  - SWELLING FACE [None]
  - FATIGUE [None]
